FAERS Safety Report 24453490 (Version 2)
Quarter: 2024Q4

REPORT INFORMATION
  Report Type: Report from Study
  Country: US (occurrence: US)
  Receive Date: 20241017
  Receipt Date: 20241018
  Transmission Date: 20250115
  Serious: No
  Sender: ROCHE
  Company Number: US-ROCHE-3087434

PATIENT
  Age: 61 Year
  Sex: Female

DRUGS (6)
  1. RITUXAN [Suspect]
     Active Substance: RITUXIMAB
     Indication: Monoclonal gammopathy
     Dosage: INFUSE 375MG/M2 EVERY WEEK FOR 4 DOSES
     Route: 065
  2. RITUXAN [Suspect]
     Active Substance: RITUXIMAB
     Indication: Neuropathy peripheral
     Dosage: INFUSE 375MG/M2 EVERY WEEK FOR 4 DOSES
     Route: 065
  3. RITUXAN [Suspect]
     Active Substance: RITUXIMAB
     Indication: Polyneuropathy
  4. RITUXAN [Suspect]
     Active Substance: RITUXIMAB
     Indication: Autoimmune disorder
  5. RITUXAN [Suspect]
     Active Substance: RITUXIMAB
     Indication: Congenital neuropathy
  6. RITUXAN [Suspect]
     Active Substance: RITUXIMAB
     Indication: Multifocal motor neuropathy

REACTIONS (3)
  - Product prescribing error [Unknown]
  - Off label use [Unknown]
  - No adverse event [Unknown]
